FAERS Safety Report 16712503 (Version 1)
Quarter: 2019Q3

REPORT INFORMATION
  Report Type: Spontaneous
  Country: CN (occurrence: CN)
  Receive Date: 20190816
  Receipt Date: 20190816
  Transmission Date: 20191004
  Serious: Yes (Hospitalization)
  Sender: FDA-Public Use
  Company Number: CN-VALIDUS PHARMACEUTICALS LLC-CN-2019VAL000416

PATIENT

DRUGS (1)
  1. CALCITRIOL. [Suspect]
     Active Substance: CALCITRIOL
     Indication: AZOTAEMIA
     Dosage: UNK
     Route: 048

REACTIONS (11)
  - Pain in extremity [Unknown]
  - Ulcer [Unknown]
  - Finger deformity [Unknown]
  - Intentional product use issue [Unknown]
  - Pruritus [Recovering/Resolving]
  - Gait disturbance [Unknown]
  - Calcinosis [Unknown]
  - Hypocalcaemia [Unknown]
  - Bone pain [Recovering/Resolving]
  - Off label use [Unknown]
  - Parathyroid hyperplasia [Unknown]
